FAERS Safety Report 11021787 (Version 2)
Quarter: 2015Q3

REPORT INFORMATION
  Report Type: Spontaneous
  Country: US (occurrence: US)
  Receive Date: 20150413
  Receipt Date: 20150814
  Transmission Date: 20151125
  Serious: Yes (Hospitalization)
  Sender: FDA-Public Use
  Company Number: US-BAYER-2015-122755

PATIENT
  Age: 29 Year
  Sex: Female
  Weight: 69.84 kg

DRUGS (3)
  1. DOXYCYCLINE. [Concomitant]
     Active Substance: DOXYCYCLINE
  2. MIRENA [Suspect]
     Active Substance: LEVONORGESTREL
     Indication: CONTRACEPTION
     Dosage: 20 MCG/24HR, CONT
     Route: 015
     Dates: start: 20111129, end: 20140912
  3. NOR-QD [Concomitant]
     Active Substance: NORETHINDRONE

REACTIONS (10)
  - Colon injury [None]
  - Uterine perforation [None]
  - Scar [None]
  - Gastrointestinal injury [None]
  - Adhesion [None]
  - Abdominal pain [None]
  - Back pain [None]
  - Device issue [None]
  - Injury [None]
  - Pelvic pain [None]

NARRATIVE: CASE EVENT DATE: 201402
